FAERS Safety Report 9889798 (Version 1)
Quarter: 2014Q1

REPORT INFORMATION
  Report Type: Report from Study
  Country: FR (occurrence: FR)
  Receive Date: 20140212
  Receipt Date: 20140212
  Transmission Date: 20141002
  Serious: Yes (Other)
  Sender: FDA-Public Use
  Company Number: FR-ROCHE-1346516

PATIENT
  Sex: Female

DRUGS (18)
  1. MABTHERA [Suspect]
     Indication: RHEUMATOID ARTHRITIS
     Route: 065
     Dates: start: 20080321
  2. MABTHERA [Suspect]
     Route: 065
     Dates: start: 20080404
  3. MABTHERA [Suspect]
     Route: 065
     Dates: start: 20081223
  4. MABTHERA [Suspect]
     Route: 065
     Dates: start: 20090107
  5. MABTHERA [Suspect]
     Route: 065
     Dates: start: 20100504
  6. MABTHERA [Suspect]
     Route: 065
     Dates: start: 20100520
  7. MABTHERA [Suspect]
     Route: 065
     Dates: start: 20110606
  8. MABTHERA [Suspect]
     Route: 065
     Dates: start: 20110620
  9. MABTHERA [Suspect]
     Route: 065
     Dates: start: 20111206
  10. METHOTREXATE [Concomitant]
     Route: 065
     Dates: start: 20080321
  11. METHOTREXATE [Concomitant]
     Route: 065
     Dates: start: 20080404
  12. METHOTREXATE [Concomitant]
     Route: 065
     Dates: start: 20090107
  13. METHOTREXATE [Concomitant]
     Route: 065
     Dates: start: 20100520
  14. CORTANCYL [Concomitant]
     Dosage: 7 MG/DAY
     Route: 065
     Dates: start: 20080321
  15. CORTANCYL [Concomitant]
     Dosage: 10 MG/DAY
     Route: 065
     Dates: start: 20080404
  16. CORTANCYL [Concomitant]
     Dosage: 5 MG/DAY
     Route: 065
     Dates: start: 20090107
  17. CORTANCYL [Concomitant]
     Dosage: 5 MG/DAY
     Route: 065
     Dates: start: 20100520
  18. CORTANCYL [Concomitant]
     Dosage: 10 MG/DAY
     Route: 065
     Dates: start: 20111206

REACTIONS (8)
  - Swelling face [Recovered/Resolved]
  - Blood pressure fluctuation [Recovered/Resolved]
  - Hot flush [Recovered/Resolved]
  - Bronchitis [Recovered/Resolved]
  - Cystitis [Recovered/Resolved]
  - Thyroid disorder [Not Recovered/Not Resolved]
  - Nodule [Not Recovered/Not Resolved]
  - Dysphagia [Not Recovered/Not Resolved]
